FAERS Safety Report 7002624-4 (Version None)
Quarter: 2010Q3

REPORT INFORMATION
  Report Type: 
  Country: None (occurrence: None)
  Receive Date: 20100920
  Receipt Date: 20070424
  Transmission Date: 20110219
  Serious: No
  Sender: FDA-Public Use
  Company Number: US-ASTRAZENECA-2006UW26245

PATIENT
  Age: 23 Year
  Sex: Female
  Weight: 59 kg

DRUGS (12)
  1. SEROQUEL [Suspect]
     Indication: BIPOLAR I DISORDER
     Dosage: 200 MG 1 TAB Q AM AND 2 TAB QPM
     Route: 048
     Dates: start: 20020223
  2. SEROQUEL [Suspect]
     Indication: BIPOLAR DISORDER
     Dosage: 200 MG 1 TAB Q AM AND 2 TAB QPM
     Route: 048
     Dates: start: 20020223
  3. SEROQUEL [Suspect]
     Indication: PSYCHOTIC DISORDER
     Dosage: 200 MG 1 TAB Q AM AND 2 TAB QPM
     Route: 048
     Dates: start: 20020223
  4. SEROQUEL [Suspect]
     Dosage: 400- 600 MG
     Route: 048
     Dates: start: 20030101, end: 20060101
  5. SEROQUEL [Suspect]
     Dosage: 400- 600 MG
     Route: 048
     Dates: start: 20030101, end: 20060101
  6. SEROQUEL [Suspect]
     Dosage: 400- 600 MG
     Route: 048
     Dates: start: 20030101, end: 20060101
  7. ABILIFY [Concomitant]
  8. LEXAPRO [Concomitant]
  9. ATIVAN [Concomitant]
     Indication: AGITATION
     Dosage: 1 MG Q 6 HR PRN
     Route: 042
     Dates: start: 20020227
  10. ATIVAN [Concomitant]
     Indication: ANXIETY
     Dosage: 1 MG Q 6 HR PRN
     Route: 042
     Dates: start: 20020227
  11. TEGRETOL [Concomitant]
     Route: 048
     Dates: start: 20030610
  12. CATAPRES [Concomitant]
     Route: 048
     Dates: start: 20030610

REACTIONS (3)
  - DIABETES MELLITUS [None]
  - OVERWEIGHT [None]
  - WEIGHT INCREASED [None]
